FAERS Safety Report 11223854 (Version 3)
Quarter: 2016Q2

REPORT INFORMATION
  Report Type: Spontaneous
  Country: IT (occurrence: IT)
  Receive Date: 20150629
  Receipt Date: 20160523
  Transmission Date: 20160815
  Serious: Yes (Hospitalization, Other)
  Sender: FDA-Public Use
  Company Number: IT-009507513-1506ITA010335

PATIENT
  Age: 74 Year
  Sex: Male

DRUGS (1)
  1. ONCOTICE [Suspect]
     Active Substance: BACILLUS CALMETTE-GUERIN SUBSTRAIN TICE LIVE ANTIGEN
     Indication: BLADDER TRANSITIONAL CELL CARCINOMA STAGE 0
     Dosage: 2-8 X 10^8 CFU CYCLIC
     Route: 043
     Dates: start: 20150615, end: 20150615

REACTIONS (1)
  - Hyperpyrexia [Recovered/Resolved]

NARRATIVE: CASE EVENT DATE: 20150616
